FAERS Safety Report 5152340-9 (Version None)
Quarter: 2006Q4

REPORT INFORMATION
  Report Type: 
  Country: None (occurrence: None)
  Receive Date: 20061116
  Receipt Date: 20061109
  Transmission Date: 20070319
  Serious: Yes (Other)
  Sender: FDA-Public Use
  Company Number: 2006AP05386

PATIENT
  Age: 74 Year
  Sex: Female
  Weight: 57 kg

DRUGS (6)
  1. XYLOCAINE [Suspect]
     Indication: EPIDURAL ANAESTHESIA
     Route: 037
     Dates: start: 20060809, end: 20060904
  2. TOFRANIL [Suspect]
     Indication: POST HERPETIC NEURALGIA
     Route: 048
     Dates: start: 20060825, end: 20060830
  3. TOFRANIL [Suspect]
     Route: 048
     Dates: start: 20060831, end: 20060901
  4. GOODMIN [Concomitant]
     Route: 048
  5. LORFENAMIN [Concomitant]
     Route: 048
     Dates: end: 20060901
  6. RUEFRIEN [Concomitant]
     Route: 048
     Dates: end: 20060901

REACTIONS (3)
  - ALANINE AMINOTRANSFERASE INCREASED [None]
  - ASPARTATE AMINOTRANSFERASE INCREASED [None]
  - HEPATIC FUNCTION ABNORMAL [None]
